FAERS Safety Report 8605582-1 (Version None)
Quarter: 2012Q3

REPORT INFORMATION
  Report Type: 
  Country: None (occurrence: None)
  Receive Date: 20120820
  Receipt Date: 20120809
  Transmission Date: 20120928
  Serious: Yes (Hospitalization)
  Sender: FDA-Public Use
  Company Number: US-ASTRAZENECA-2012SE56294

PATIENT
  Age: 84 Year
  Sex: Female

DRUGS (2)
  1. AMBUTEROL [Concomitant]
  2. SYMBICORT [Suspect]
     Dosage: 160, TWO TIMES A DAY
     Route: 055

REACTIONS (4)
  - DYSPNOEA [None]
  - PNEUMONIA [None]
  - HAEMOPTYSIS [None]
  - DYSPHONIA [None]
